FAERS Safety Report 4613983-1 (Version None)
Quarter: 2005Q1

REPORT INFORMATION
  Report Type: 
  Country: None (occurrence: None)
  Receive Date: 20050321
  Receipt Date: 20050127
  Transmission Date: 20050727
  Serious: Yes (Other)
  Sender: FDA-Public Use
  Company Number: FR-ROCHE-393791

PATIENT
  Age: 37 Year
  Sex: Male
  Weight: 83.5 kg

DRUGS (3)
  1. SAQUINAVIR [Suspect]
     Dosage: RECEIVED 36 * 1000 MG
     Route: 048
     Dates: start: 20050107, end: 20050125
  2. RITONAVIR [Suspect]
     Dosage: RECEIVED 36 * 100 MG
     Route: 048
     Dates: start: 20050107, end: 20050125
  3. RIFAMPICIN [Suspect]
     Dosage: RECEIVED 5 * 600 MG
     Route: 048
     Dates: start: 20050121, end: 20050125

REACTIONS (5)
  - ABDOMINAL PAIN UPPER [None]
  - ALANINE AMINOTRANSFERASE INCREASED [None]
  - ASPARTATE AMINOTRANSFERASE INCREASED [None]
  - GAMMA-GLUTAMYLTRANSFERASE INCREASED [None]
  - TRANSAMINASES INCREASED [None]
